FAERS Safety Report 6087268-3 (Version None)
Quarter: 2009Q1

REPORT INFORMATION
  Report Type: 
  Country: None (occurrence: None)
  Receive Date: 20090219
  Receipt Date: 20081121
  Transmission Date: 20090719
  Serious: Yes (Life-Threatening, Hospitalization, Other)
  Sender: FDA-Public Use
  Company Number: WAES 0811USA03736

PATIENT
  Age: 57 Year
  Sex: Male
  Weight: 82.5547 kg

DRUGS (5)
  1. ISENTRESS [Suspect]
     Indication: HIV INFECTION
     Dosage: 400 MG/BID/PO
     Route: 048
     Dates: start: 20080911, end: 20081031
  2. INTELENCE [Suspect]
     Indication: HIV INFECTION
     Dosage: 400 MG/DAILY/PO
     Route: 048
     Dates: start: 20080911, end: 20081031
  3. AZTOR [Concomitant]
  4. TRUVADA [Concomitant]
  5. METFORMIN [Concomitant]

REACTIONS (1)
  - ANAEMIA [None]
